FAERS Safety Report 17458469 (Version 1)
Quarter: 2020Q1

REPORT INFORMATION
  Report Type: Report from Study
  Country: CA (occurrence: CA)
  Receive Date: 20200225
  Receipt Date: 20200225
  Transmission Date: 20200409
  Serious: Yes (Other)
  Sender: FDA-Public Use
  Company Number: CA-JNJFOC-20200120754

PATIENT
  Sex: Male
  Weight: 66 kg

DRUGS (1)
  1. STELARA [Suspect]
     Active Substance: USTEKINUMAB
     Indication: CROHN^S DISEASE
     Route: 058
     Dates: start: 20171122

REACTIONS (3)
  - Nasopharyngitis [Recovering/Resolving]
  - Abnormal faeces [Recovering/Resolving]
  - Volvulus [Unknown]
